FAERS Safety Report 16269895 (Version 6)
Quarter: 2019Q4

REPORT INFORMATION
  Report Type: Report from Study
  Country: CN (occurrence: CN)
  Receive Date: 20190503
  Receipt Date: 20191217
  Transmission Date: 20200122
  Serious: Yes (Hospitalization)
  Sender: FDA-Public Use
  Company Number: CN-ROCHE-2228201

PATIENT
  Age: 65 Year
  Sex: Male
  Weight: 60 kg

DRUGS (8)
  1. ESTAZOLAM. [Concomitant]
     Active Substance: ESTAZOLAM
     Indication: PROPHYLAXIS
     Route: 048
     Dates: start: 20181109, end: 20181116
  2. ATEZOLIZUMAB. [Suspect]
     Active Substance: ATEZOLIZUMAB
     Indication: NON-SMALL CELL LUNG CANCER
     Dosage: DATE OF MOST RECENT DOSE OF ATEZOLIZUMAB PRIOR TO SAE ONSET: 27/NOV/2018 AT 12.38
     Route: 042
     Dates: start: 20181127
  3. METHYLPREDNISOLONE SODIUM SUCCINATE. [Concomitant]
     Active Substance: METHYLPREDNISOLONE SODIUM SUCCINATE
     Route: 042
     Dates: start: 20181106, end: 20181106
  4. LACTULOSE. [Concomitant]
     Active Substance: LACTULOSE
     Indication: DYSPEPSIA
     Route: 048
     Dates: start: 20181108, end: 20181108
  5. MEGESTROL ACETATE. [Concomitant]
     Active Substance: MEGESTROL ACETATE
     Dosage: DISPERSIBLE TABLETS
     Route: 048
     Dates: start: 20181106, end: 20181106
  6. FOLINIC ACID [Concomitant]
     Active Substance: LEUCOVORIN
     Dosage: LEFT FOLINIC ACID CALCIUM NEEDLE
     Route: 042
     Dates: start: 20181106, end: 20181106
  7. SODIUM IBANDRONATE [Concomitant]
     Active Substance: IBANDRONATE SODIUM
     Route: 042
     Dates: start: 20181126, end: 20181126
  8. COMPOUND CODEINE PHOSPHATE [Concomitant]
     Dosage: 10 ML (MILLILITER*CM*3)
     Route: 048
     Dates: start: 20181115, end: 20181119

REACTIONS (2)
  - Cerebral infarction [Not Recovered/Not Resolved]
  - Hypokalaemia [Not Recovered/Not Resolved]

NARRATIVE: CASE EVENT DATE: 20181205
